FAERS Safety Report 6265064-1 (Version None)
Quarter: 2009Q3

REPORT INFORMATION
  Report Type: 
  Country: None (occurrence: None)
  Receive Date: 20090713
  Receipt Date: 20090623
  Transmission Date: 20100115
  Serious: Yes (Other)
  Sender: FDA-Public Use
  Company Number: NL-PFIZER INC-2009227385

PATIENT
  Age: 59 Year

DRUGS (15)
  1. NEURONTIN [Suspect]
     Indication: NEUROPATHY PERIPHERAL
     Dosage: UNK
     Route: 048
     Dates: start: 20090228
  2. NEURONTIN [Suspect]
     Dosage: 400 MG, 2X/DAY
     Route: 048
  3. LIPITOR [Concomitant]
     Dosage: 20 MG, 1X/DAY
     Dates: start: 20060328
  4. NEXIUM [Concomitant]
     Dosage: 40 MG, 1X/DAY
     Dates: start: 20081204
  5. FUROSEMIDE [Concomitant]
     Dosage: 40 MG, 1X/DAY
     Dates: start: 20051217
  6. LORAZEPAM [Concomitant]
     Dosage: 1 MG, 2X/DAY
     Dates: start: 20061204
  7. OXYCONTIN [Concomitant]
     Dosage: 10 MG, 2X/DAY
     Dates: start: 20081112
  8. OXYNORM [Concomitant]
     Dosage: 5 MG, 2X/DAY
     Dates: start: 20090209
  9. PERINDOPRIL [Concomitant]
     Dosage: 2 MG, 1X/DAY
     Dates: start: 20060328
  10. SOTALOL [Concomitant]
     Dosage: 40 MG, 2X/DAY
     Dates: start: 20051217
  11. THIAMINE [Concomitant]
     Dosage: 50 MG, 1X/DAY
     Dates: start: 20090216
  12. ACENOCOUMAROL [Concomitant]
     Dosage: 100 MG, UNK
     Dates: start: 20080917
  13. TEMAZEPAM [Concomitant]
     Dosage: 20 MG, AS NEEDED
     Dates: start: 19950109
  14. FLUCLOXACILLIN [Concomitant]
     Dosage: 1000 MG, 4X/DAY
     Dates: start: 20060303
  15. RIFAMPICIN [Concomitant]
     Dosage: 600 MG, 2X/DAY
     Dates: start: 20090429

REACTIONS (6)
  - DIARRHOEA [None]
  - FEELING DRUNK [None]
  - INTERVERTEBRAL DISCITIS [None]
  - SEPTIC EMBOLUS [None]
  - SOMNOLENCE [None]
  - WEIGHT INCREASED [None]
